FAERS Safety Report 20911144 (Version 2)
Quarter: 2022Q2

REPORT INFORMATION
  Report Type: Spontaneous
  Country: US (occurrence: US)
  Receive Date: 20220603
  Receipt Date: 20220614
  Transmission Date: 20220721
  Serious: Yes (Hospitalization, Other)
  Sender: FDA-Public Use
  Company Number: US-009507513-2206USA000422

PATIENT
  Sex: Male

DRUGS (9)
  1. TICE BCG [Suspect]
     Active Substance: BACILLUS CALMETTE-GUERIN SUBSTRAIN TICE LIVE ANTIGEN
     Indication: Bladder cancer
     Dosage: UNK
     Dates: start: 20220223
  2. XOLAIR [Concomitant]
     Active Substance: OMALIZUMAB
  3. AMLODIPINE [Concomitant]
     Active Substance: AMLODIPINE BESYLATE
  4. ATORVASTATIN [Concomitant]
     Active Substance: ATORVASTATIN
  5. HYDROCHLOROTHIAZIDE [Concomitant]
     Active Substance: HYDROCHLOROTHIAZIDE
  6. LORATADINE [Concomitant]
     Active Substance: LORATADINE
  7. METFORMIN [Concomitant]
     Active Substance: METFORMIN HYDROCHLORIDE
  8. NEXIUM 24HR [Concomitant]
     Active Substance: ESOMEPRAZOLE MAGNESIUM
  9. POTASSIUM [Concomitant]
     Active Substance: POTASSIUM

REACTIONS (2)
  - Sepsis [Recovered/Resolved]
  - Bladder spasm [Recovered/Resolved]

NARRATIVE: CASE EVENT DATE: 20220101
